FAERS Safety Report 9271951 (Version 2)
Quarter: 2013Q2

REPORT INFORMATION
  Report Type: Spontaneous
  Country: ES (occurrence: ES)
  Receive Date: 20130506
  Receipt Date: 20130528
  Transmission Date: 20140414
  Serious: Yes (Other)
  Sender: FDA-Public Use
  Company Number: ES-FRI-1000044937

PATIENT
  Age: 64 Year
  Sex: Male

DRUGS (3)
  1. ACLIDINIUM BROMIDE [Suspect]
     Dates: start: 20130306
  2. OSLIF [Concomitant]
     Dates: start: 201212
  3. LANSOPRAZOL [Concomitant]
     Dates: start: 2012

REACTIONS (1)
  - Hypersensitivity [Recovered/Resolved]
